FAERS Safety Report 7587371-2 (Version None)
Quarter: 2011Q3

REPORT INFORMATION
  Report Type: 
  Country: None (occurrence: None)
  Receive Date: 20110701
  Receipt Date: 20110627
  Transmission Date: 20111222
  Serious: Yes (Life-Threatening, Hospitalization)
  Sender: FDA-Public Use
  Company Number: NO-ASTRAZENECA-2011SE37400

PATIENT
  Age: 77 Year
  Sex: Female

DRUGS (3)
  1. METOPROLOL TARTRATE [Concomitant]
     Route: 048
  2. BETAMETHASONE [Suspect]
     Indication: OSTEITIS
     Dosage: 1 ML OF 6 MG/ML
     Route: 030
     Dates: start: 20110518, end: 20110518
  3. XYLOCAINE [Suspect]
     Indication: OSTEITIS
     Dosage: 4 ML OF 2 % (20 MG/ML) XYLOCAIN
     Route: 030
     Dates: start: 20110518, end: 20110518

REACTIONS (1)
  - VENTRICULAR TACHYCARDIA [None]
